FAERS Safety Report 8449764-0 (Version None)
Quarter: 2012Q2

REPORT INFORMATION
  Report Type: 
  Country: None (occurrence: None)
  Receive Date: 20120620
  Receipt Date: 20120618
  Transmission Date: 20120825
  Serious: No
  Sender: FDA-Public Use
  Company Number: US-PFIZER INC-2012147160

PATIENT
  Sex: Female
  Weight: 77 kg

DRUGS (2)
  1. CELEBREX [Suspect]
     Indication: ARTHRALGIA
     Dosage: 200 MG, 1X/DAY
     Route: 048
     Dates: start: 20120607, end: 20120608
  2. PROBIOTICS [Concomitant]
     Dosage: UNK, DAILY
     Route: 048

REACTIONS (4)
  - DECREASED APPETITE [None]
  - HEART RATE INCREASED [None]
  - NAUSEA [None]
  - FATIGUE [None]
